FAERS Safety Report 5264089-2 (Version None)
Quarter: 2007Q1

REPORT INFORMATION
  Report Type: 
  Country: None (occurrence: None)
  Receive Date: 20070313
  Receipt Date: 20070228
  Transmission Date: 20070707
  Serious: Yes (Other)
  Sender: FDA-Public Use
  Company Number: FR-ELI_LILLY_AND_COMPANY-FR200701003909

PATIENT
  Age: 52 Year
  Sex: Female
  Weight: 46 kg

DRUGS (3)
  1. EVISTA [Suspect]
     Dosage: 60 MG, DAILY (1/D)
     Route: 048
     Dates: start: 20040101, end: 20061201
  2. DI-ANTALVIC [Concomitant]
     Dosage: 6 D/F, UNK
     Dates: start: 19920101
  3. GINKOR [Concomitant]
     Dosage: 2 D/F, UNK
     Dates: start: 19920101

REACTIONS (3)
  - ASTHENIA [None]
  - HYPOTHERMIA [None]
  - NEUTROPENIA [None]
